FAERS Safety Report 8605379 (Version 3)
Quarter: 2012Q4

REPORT INFORMATION
  Report Type: 
  Country: US (occurrence: US)
  Receive Date: 20120608
  Receipt Date: 20120926
  Transmission Date: 20130627
  Serious: Yes (Disabling, Other)
  Sender: FDA-Public Use
  Company Number: US-009507513-1206USA00885

PATIENT

DRUGS (4)
  1. FOSAMAX [Suspect]
     Indication: OSTEOPENIA
     Dosage: UNK
     Route: 048
     Dates: start: 20030103, end: 20070418
  2. FOSAMAX [Suspect]
     Indication: OSTEOPOROSIS
     Dosage: 70 mg, UNK
     Route: 048
     Dates: start: 20041230
  3. BENICAR [Concomitant]
     Indication: HYPERTENSION
     Dosage: UNK
     Dates: start: 2002
  4. METOPROLOL [Concomitant]
     Indication: HYPERTENSION
     Dosage: UNK
     Dates: start: 2007

REACTIONS (12)
  - Wrist fracture [Unknown]
  - Femur fracture [Unknown]
  - Tooth fracture [Unknown]
  - Blood cholesterol increased [Unknown]
  - Depression [Unknown]
  - Migraine [Unknown]
  - Blood aldosterone increased [Unknown]
  - Adrenal mass [Unknown]
  - Hypothyroidism [Unknown]
  - Bursitis [Unknown]
  - Vitamin D deficiency [Unknown]
  - Neck pain [Unknown]
